FAERS Safety Report 21772741 (Version 2)
Quarter: 2023Q2

REPORT INFORMATION
  Report Type: Spontaneous
  Country: US (occurrence: US)
  Receive Date: 20221223
  Receipt Date: 20230609
  Transmission Date: 20230721
  Serious: No
  Sender: FDA-Public Use
  Company Number: US-BRISTOL-MYERS SQUIBB COMPANY-2022-157901

PATIENT
  Age: 73 Year
  Sex: Female
  Weight: 72.57 kg

DRUGS (2)
  1. REVLIMID [Suspect]
     Active Substance: LENALIDOMIDE
     Indication: Plasma cell myeloma
     Dosage: FREQUENCY: 21D ON 7D OFF
     Route: 048
     Dates: start: 20211201
  2. REVLIMID [Suspect]
     Active Substance: LENALIDOMIDE
     Dosage: FREQUENCY: 21D ON 7D OFF
     Route: 048

REACTIONS (3)
  - Haemoglobin decreased [Unknown]
  - Nasopharyngitis [Unknown]
  - Cough [Unknown]
